FAERS Safety Report 7967781-1 (Version None)
Quarter: 2011Q4

REPORT INFORMATION
  Report Type: 
  Country: None (occurrence: None)
  Receive Date: 20111122
  Receipt Date: 20110830
  Transmission Date: 20120403
  Serious: No
  Sender: FDA-Public Use
  Company Number: PHHY2011US54720

PATIENT
  Age: 34 Year
  Sex: Female
  Weight: 85.7 kg

DRUGS (5)
  1. GILENYA [Suspect]
     Indication: MULTIPLE SCLEROSIS
     Dosage: 0.5 MG, EVERY DAY, ORAL
     Route: 048
     Dates: start: 20110616
  2. TOPIRAMATE [Concomitant]
  3. VITAMIN D [Concomitant]
  4. GABAPENTIN [Concomitant]
  5. CARBAMAZEPINE [Concomitant]

REACTIONS (3)
  - VERTIGO POSITIONAL [None]
  - BACK PAIN [None]
  - FLUSHING [None]
